FAERS Safety Report 4841657-0 (Version None)
Quarter: 2005Q4

REPORT INFORMATION
  Report Type: 
  Country: None (occurrence: None)
  Receive Date: 20051130
  Receipt Date: 20050916
  Transmission Date: 20060501
  Serious: No
  Sender: FDA-Public Use
  Company Number: US-GLAXOSMITHKLINE-A0574542A

PATIENT
  Age: 35 Year
  Sex: Female

DRUGS (6)
  1. WELLBUTRIN XL [Suspect]
     Indication: DEPRESSION
     Dosage: 150MG PER DAY
     Route: 048
     Dates: start: 20050601
  2. WELLBUTRIN [Suspect]
     Indication: DEPRESSION
     Dosage: 150MG PER DAY
     Route: 048
     Dates: end: 20050601
  3. METHADONE HCL [Concomitant]
  4. FIORICET [Concomitant]
  5. PHENOBARBITAL [Concomitant]
  6. ZOLOFT [Concomitant]
     Dates: end: 20050601

REACTIONS (6)
  - AGGRESSION [None]
  - ANGER [None]
  - ANXIETY [None]
  - EMOTIONAL DISORDER [None]
  - FEELING ABNORMAL [None]
  - LIBIDO DECREASED [None]
